FAERS Safety Report 5138365-8 (Version None)
Quarter: 2006Q4

REPORT INFORMATION
  Report Type: 
  Country: None (occurrence: None)
  Receive Date: 20061024
  Receipt Date: 20061013
  Transmission Date: 20070319
  Serious: Yes (Other)
  Sender: FDA-Public Use
  Company Number: 2006125322

PATIENT
  Age: 46 Year
  Sex: Female
  Weight: 63.5036 kg

DRUGS (3)
  1. ROLAIDS [Suspect]
     Indication: DYSPEPSIA
     Dosage: 3 TABLETS WITHIN 15 MINUTES, ORAL
     Route: 048
     Dates: start: 20061012, end: 20061012
  2. SERTRALINE HCL [Concomitant]
  3. BUPROPION HYDROCHLORIDE [Concomitant]

REACTIONS (7)
  - CHEST PAIN [None]
  - CONDITION AGGRAVATED [None]
  - DYSPEPSIA [None]
  - DYSPNOEA [None]
  - PHARYNGOLARYNGEAL PAIN [None]
  - RETCHING [None]
  - THROAT TIGHTNESS [None]
